FAERS Safety Report 14892277 (Version 1)
Quarter: 2018Q2

REPORT INFORMATION
  Report Type: Spontaneous
  Country: US (occurrence: US)
  Receive Date: 20180514
  Receipt Date: 20180514
  Transmission Date: 20180711
  Serious: No
  Sender: FDA-Public Use
  Company Number: US-UNITED THERAPEUTICS-UNT-2018-002856

PATIENT
  Sex: Female

DRUGS (1)
  1. REMODULIN [Suspect]
     Active Substance: TREPROSTINIL
     Indication: PULMONARY ARTERIAL HYPERTENSION
     Dosage: 0.02375 ?G/KG, CONTINUING
     Route: 041
     Dates: start: 20180109

REACTIONS (4)
  - Injection site irritation [Unknown]
  - Injection site erythema [Unknown]
  - Injection site discharge [Not Recovered/Not Resolved]
  - Injection site vesicles [Unknown]
